FAERS Safety Report 19309520 (Version 1)
Quarter: 2021Q2

REPORT INFORMATION
  Report Type: Report from Study
  Country: US (occurrence: US)
  Receive Date: 20210525
  Receipt Date: 20210525
  Transmission Date: 20210717
  Serious: Yes (Other)
  Sender: FDA-Public Use
  Company Number: US-BEH-2021132034

PATIENT
  Age: 46 Year
  Sex: Female
  Weight: 79.37 kg

DRUGS (1)
  1. HIZENTRA [Suspect]
     Active Substance: HUMAN IMMUNOGLOBULIN G
     Indication: IMMUNODEFICIENCY COMMON VARIABLE
     Dosage: 8 GRAM, QW
     Route: 058
     Dates: start: 20210512

REACTIONS (4)
  - Fall [Recovering/Resolving]
  - Contusion [Recovering/Resolving]
  - Joint dislocation [Recovering/Resolving]
  - Muscle strain [Recovering/Resolving]

NARRATIVE: CASE EVENT DATE: 20210518
